FAERS Safety Report 10622811 (Version 1)
Quarter: 2014Q4

REPORT INFORMATION
  Report Type: Spontaneous
  Country: US (occurrence: None)
  Receive Date: 20141202
  Receipt Date: 20141202
  Transmission Date: 20150529
  Serious: No
  Sender: FDA-Public Use
  Company Number: None

PATIENT
  Age: 23 Year
  Sex: Female
  Weight: 90.72 kg

DRUGS (2)
  1. GABAPENTIN. [Suspect]
     Active Substance: GABAPENTIN
     Indication: MOOD SWINGS
     Dosage: 1 PILL SIX DAILY TAKEN BY MOUTH
     Route: 048
  2. GABAPENTIN. [Suspect]
     Active Substance: GABAPENTIN
     Indication: FIBROMYALGIA
     Dosage: 1 PILL SIX DAILY TAKEN BY MOUTH
     Route: 048

REACTIONS (4)
  - Fatigue [None]
  - Chills [None]
  - Nausea [None]
  - Drug withdrawal syndrome [None]
